FAERS Safety Report 8959705 (Version 1)
Quarter: 2012Q4

REPORT INFORMATION
  Report Type: 
  Country: US (occurrence: US)
  Receive Date: 20121212
  Receipt Date: 20121212
  Transmission Date: 20130627
  Serious: No
  Sender: FDA-Public Use
  Company Number: US-TEVA-347379USA

PATIENT
  Sex: Female

DRUGS (1)
  1. BUDESONIDE [Suspect]
     Dates: start: 20120704, end: 20120705

REACTIONS (4)
  - Tremor [Unknown]
  - Headache [Unknown]
  - Nausea [Unknown]
  - Dyspnoea [Unknown]
